FAERS Safety Report 13843833 (Version 29)
Quarter: 2023Q2

REPORT INFORMATION
  Report Type: Report from Study
  Country: CA (occurrence: CA)
  Receive Date: 20170808
  Receipt Date: 20230508
  Transmission Date: 20230721
  Serious: Yes (Death, Hospitalization, Other)
  Sender: FDA-Public Use
  Company Number: PHHY2016CA118687

PATIENT
  Age: 75 Year
  Sex: Male

DRUGS (7)
  1. SANDOSTATIN LAR DEPOT [Suspect]
     Active Substance: OCTREOTIDE ACETATE
     Indication: Carcinoid tumour
     Dosage: 30 MG, Q4W
     Route: 030
     Dates: start: 20160824
  2. SANDOSTATIN LAR DEPOT [Suspect]
     Active Substance: OCTREOTIDE ACETATE
     Dosage: 60 MG, UNK
     Route: 030
  3. SANDOSTATIN LAR DEPOT [Suspect]
     Active Substance: OCTREOTIDE ACETATE
     Dosage: 30 MG, Q4W
     Route: 030
  4. AFINITOR [Suspect]
     Active Substance: EVEROLIMUS
     Indication: Gastroenteropancreatic neuroendocrine tumour disease
     Dosage: 10 MG, UNK
     Route: 048
     Dates: start: 20170214, end: 20170722
  5. VALSARTAN [Concomitant]
     Active Substance: VALSARTAN
     Indication: Product used for unknown indication
     Dosage: UNK
     Route: 065
     Dates: start: 2016
  6. RAMIPRIL [Concomitant]
     Active Substance: RAMIPRIL
     Indication: Product used for unknown indication
     Dosage: 10 MG
     Route: 065
     Dates: end: 2016
  7. POLYETHYLENE GLYCOL 3350 [Concomitant]
     Active Substance: POLYETHYLENE GLYCOL 3350
     Indication: Product used for unknown indication
     Dosage: UNK
     Route: 048

REACTIONS (17)
  - Death [Fatal]
  - Pulmonary embolism [Recovered/Resolved]
  - Blood pressure increased [Unknown]
  - Hepatic haemorrhage [Recovered/Resolved]
  - Neoplasm progression [Unknown]
  - Metastases to liver [Unknown]
  - Sciatica [Unknown]
  - Musculoskeletal pain [Unknown]
  - Influenza [Unknown]
  - Pain [Unknown]
  - Anxiety [Unknown]
  - Myalgia [Unknown]
  - Abdominal pain [Unknown]
  - Dizziness [Unknown]
  - Nausea [Unknown]
  - Needle issue [Unknown]
  - Injection site pain [Unknown]

NARRATIVE: CASE EVENT DATE: 20160825
